FAERS Safety Report 11789007 (Version 1)
Quarter: 2015Q4

REPORT INFORMATION
  Report Type: Report from Study
  Country: CA (occurrence: CA)
  Receive Date: 20151201
  Receipt Date: 20151201
  Transmission Date: 20160305
  Serious: Yes (Other)
  Sender: FDA-Public Use
  Company Number: PHHY2015CA153352

PATIENT
  Age: 56 Year
  Sex: Female

DRUGS (4)
  1. IMATINIB [Suspect]
     Active Substance: IMATINIB
     Dosage: 300 MG, UNK
     Route: 048
  2. IMATINIB [Suspect]
     Active Substance: IMATINIB
     Dosage: 200 MG, UNK
     Route: 048
  3. IMATINIB [Suspect]
     Active Substance: IMATINIB
     Indication: CHRONIC MYELOID LEUKAEMIA
     Dosage: 400 MG, QD
     Route: 048
     Dates: start: 200306
  4. IMATINIB [Suspect]
     Active Substance: IMATINIB
     Dosage: 600 MG, UNK
     Route: 048
     Dates: end: 201506

REACTIONS (7)
  - Carotid arteriosclerosis [Recovered/Resolved]
  - Liver function test abnormal [Recovered/Resolved]
  - Vitreous detachment [Recovered/Resolved]
  - Dyspepsia [Recovered/Resolved]
  - Somnolence [Recovered/Resolved]
  - Orbital oedema [Recovered/Resolved]
  - Eye haemorrhage [Recovered/Resolved]
